FAERS Safety Report 8032190-6 (Version None)
Quarter: 2012Q1

REPORT INFORMATION
  Report Type: 
  Country: None (occurrence: None)
  Receive Date: 20120110
  Receipt Date: 20111229
  Transmission Date: 20120608
  Serious: Yes (Hospitalization)
  Sender: FDA-Public Use
  Company Number: US-BIOGENIDEC-2011BI040613

PATIENT
  Age: 63 Year
  Sex: Female

DRUGS (20)
  1. LISINOPRIL [Concomitant]
     Route: 048
  2. POTASSIUM CHLORIDE ER [Concomitant]
     Route: 048
  3. VITAMIN C [Concomitant]
     Route: 048
  4. TYSABRI [Suspect]
     Indication: MULTIPLE SCLEROSIS
     Route: 042
     Dates: start: 20090129, end: 20110816
  5. LOVASTATIN [Concomitant]
     Route: 048
  6. ZINC OXIDE [Concomitant]
     Route: 061
  7. VITAMIN D [Concomitant]
  8. CHOLECALCIFEROL [Concomitant]
     Route: 048
  9. MULTIVITAMIN WITH MINERALS [Concomitant]
  10. TYSABRI [Suspect]
     Route: 042
     Dates: start: 20120104
  11. ZINC SULFATE [Concomitant]
  12. VITAMIN A [Concomitant]
     Route: 048
  13. ACETAMINOPHEN [Concomitant]
     Route: 048
  14. DOCUSATE [Concomitant]
  15. GABAPENTIN [Concomitant]
     Route: 048
  16. ALBUTEROL [Concomitant]
     Route: 055
  17. BACLOFEN [Concomitant]
     Route: 048
  18. HYPROMELLOSE [Concomitant]
     Route: 047
  19. LOVAZA [Concomitant]
     Route: 048
  20. SENNA [Concomitant]
     Route: 048

REACTIONS (3)
  - LUNG SQUAMOUS CELL CARCINOMA STAGE UNSPECIFIED [None]
  - DECUBITUS ULCER [None]
  - PNEUMONIA [None]
